FAERS Safety Report 18082709 (Version 1)
Quarter: 2020Q3

REPORT INFORMATION
  Report Type: Report from Study
  Country: AR (occurrence: AR)
  Receive Date: 20200728
  Receipt Date: 20200728
  Transmission Date: 20201103
  Serious: Yes (Hospitalization, Other)
  Sender: FDA-Public Use
  Company Number: NVSC2020AR208305

PATIENT

DRUGS (5)
  1. SINTROM [Suspect]
     Active Substance: ACENOCOUMAROL
     Indication: PRODUCT USED FOR UNKNOWN INDICATION
     Dosage: UNK
     Route: 065
     Dates: start: 201907
  2. DASATINIB. [Suspect]
     Active Substance: DASATINIB
     Indication: PRODUCT USED FOR UNKNOWN INDICATION
     Dosage: UNK
     Route: 065
  3. PREGABALIN. [Concomitant]
     Active Substance: PREGABALIN
     Indication: PRODUCT USED FOR UNKNOWN INDICATION
     Dosage: UNK
     Route: 065
  4. IMATINIB. [Suspect]
     Active Substance: IMATINIB MESYLATE
     Indication: CHRONIC MYELOID LEUKAEMIA
     Dosage: UNK
     Route: 065
  5. ALLOPURINOL. [Concomitant]
     Active Substance: ALLOPURINOL
     Indication: GOUT
     Dosage: 100 MG, QD, SINCE MORE THAN 30 YEARS AGO
     Route: 065

REACTIONS (19)
  - Drug intolerance [Unknown]
  - Asthenia [Unknown]
  - Myalgia [Unknown]
  - Abdominal pain upper [Unknown]
  - Inflammation [Recovering/Resolving]
  - Cerebrovascular accident [Unknown]
  - Blindness [Unknown]
  - White blood cell count increased [Unknown]
  - Nerve compression [Recovering/Resolving]
  - Red blood cell count increased [Unknown]
  - Pigmentation disorder [Unknown]
  - Pyrexia [Unknown]
  - Fatigue [Unknown]
  - Limb discomfort [Recovering/Resolving]
  - Sensory loss [Recovering/Resolving]
  - Pain [Recovering/Resolving]
  - Aphasia [Recovered/Resolved]
  - Drug ineffective [Unknown]
  - Feeling abnormal [Unknown]

NARRATIVE: CASE EVENT DATE: 201907
